FAERS Safety Report 15681580 (Version 1)
Quarter: 2018Q4

REPORT INFORMATION
  Report Type: Report from Study
  Country: US (occurrence: US)
  Receive Date: 20181203
  Receipt Date: 20181203
  Transmission Date: 20190205
  Serious: Yes (Other)
  Sender: FDA-Public Use
  Company Number: US-TESAROUBC-2018-TSO1014-US

PATIENT
  Age: 65 Year
  Sex: Female
  Weight: 72.65 kg

DRUGS (10)
  1. GABAPENTIN. [Concomitant]
     Active Substance: GABAPENTIN
     Indication: PRODUCT USED FOR UNKNOWN INDICATION
     Dosage: 300 MG, UNK
  2. ZEJULA [Suspect]
     Active Substance: NIRAPARIB
     Indication: OVARIAN CANCER
     Dosage: 200 MG (TWO CAPSULES OF 100 MG), DAILY
     Route: 048
     Dates: start: 20180314
  3. METFORMIN [Concomitant]
     Active Substance: METFORMIN HYDROCHLORIDE
     Indication: PRODUCT USED FOR UNKNOWN INDICATION
     Dosage: 1000 MG, UNK
  4. ZOCOR [Concomitant]
     Active Substance: SIMVASTATIN
     Indication: PRODUCT USED FOR UNKNOWN INDICATION
     Dosage: 40 MG, UNK
  5. ASPIRIN. [Concomitant]
     Active Substance: ASPIRIN
     Indication: PRODUCT USED FOR UNKNOWN INDICATION
     Dosage: 325 MG, UNK
  6. CARVEDILOL. [Concomitant]
     Active Substance: CARVEDILOL
     Indication: PRODUCT USED FOR UNKNOWN INDICATION
     Dosage: 6.25 MG, UNK
  7. VICTOZA [Concomitant]
     Active Substance: LIRAGLUTIDE
     Indication: PRODUCT USED FOR UNKNOWN INDICATION
     Dosage: 3 PACK 0.6 MG/0.1 ML (18 MG/3 ML)
     Route: 058
  8. LISINOPRIL. [Concomitant]
     Active Substance: LISINOPRIL
     Indication: PRODUCT USED FOR UNKNOWN INDICATION
     Dosage: 40 MG, UNK
  9. CYMBALTA [Concomitant]
     Active Substance: DULOXETINE HYDROCHLORIDE
     Indication: PRODUCT USED FOR UNKNOWN INDICATION
     Dosage: 60 MG, UNK
  10. TRAMADOL. [Concomitant]
     Active Substance: TRAMADOL
     Indication: PRODUCT USED FOR UNKNOWN INDICATION
     Dosage: 50 MG, UNK

REACTIONS (19)
  - Contusion [Unknown]
  - Haematochezia [Unknown]
  - Haemorrhoids [Unknown]
  - Bone pain [Unknown]
  - Nausea [Unknown]
  - Jugular vein thrombosis [Unknown]
  - Paraesthesia [Unknown]
  - Confusional state [Unknown]
  - Adjustment disorder [Unknown]
  - Underdose [Unknown]
  - Balance disorder [Unknown]
  - Decreased appetite [Unknown]
  - Depressed mood [Unknown]
  - Family stress [Unknown]
  - Weight increased [Unknown]
  - Constipation [Unknown]
  - Abdominal pain [Unknown]
  - Insomnia [Unknown]
  - Night sweats [Unknown]

NARRATIVE: CASE EVENT DATE: 2018
